FAERS Safety Report 5042675-2 (Version None)
Quarter: 2006Q3

REPORT INFORMATION
  Report Type: 
  Country: None (occurrence: None)
  Receive Date: 20060705
  Receipt Date: 20050614
  Transmission Date: 20061208
  Serious: Yes (Hospitalization)
  Sender: FDA-Public Use
  Company Number: JP-SANOFI-SYNTHELABO-F01200501059

PATIENT
  Sex: Female
  Weight: 67 kg

DRUGS (15)
  1. CLOPIDOGREL BISULFATE [Suspect]
     Indication: ANGINA UNSTABLE
     Dosage: 300 MG LOADING DOSE FOLLOWED BY 75 MG/DAY
     Route: 048
     Dates: start: 20050217, end: 20050615
  2. CRAVIT [Concomitant]
     Indication: CYSTITIS
     Dosage: 300 MG
     Route: 048
     Dates: start: 20050308, end: 20050312
  3. CRAVIT [Concomitant]
     Route: 048
     Dates: start: 20050322, end: 20050331
  4. CRAVIT [Concomitant]
     Dosage: 100 MG
     Route: 048
     Dates: start: 20050401, end: 20050512
  5. NEUZYM [Concomitant]
     Indication: CYSTITIS
     Dosage: 90 MG
     Route: 048
     Dates: start: 20050308, end: 20050312
  6. NEUZYM [Concomitant]
     Route: 048
     Dates: start: 20050322, end: 20050331
  7. NEUZYM [Concomitant]
     Dosage: 30 MG
     Route: 048
     Dates: start: 20050401, end: 20050512
  8. SAWACILLIN [Concomitant]
     Indication: CYSTITIS
     Dosage: 250 MG
     Route: 048
     Dates: start: 20050301, end: 20050301
  9. SAWACILLIN [Concomitant]
     Dosage: 750 MG
     Route: 048
     Dates: start: 20050302, end: 20050304
  10. SAWACILLIN [Concomitant]
     Dosage: 500 MG
     Route: 048
     Dates: start: 20050305, end: 20050305
  11. DEPAS [Concomitant]
     Indication: INSOMNIA
     Dosage: 0.5 MG
     Route: 048
  12. MEVALOTIN [Concomitant]
     Indication: HYPERLIPIDAEMIA
     Dosage: 10 MG
     Route: 048
  13. AMLODIN [Concomitant]
     Indication: HYPERTENSION
     Dosage: 5 MG
     Route: 048
  14. SIGMART [Concomitant]
     Indication: ANGINA PECTORIS
     Dosage: 15 MG
     Route: 065
  15. BUFFERIN [Concomitant]
     Dosage: 81 MG
     Route: 048

REACTIONS (3)
  - HAEMORRHAGIC DIATHESIS [None]
  - INTESTINAL ISCHAEMIA [None]
  - MELAENA [None]
